FAERS Safety Report 5092002-X (Version None)
Quarter: 2006Q3

REPORT INFORMATION
  Report Type: 
  Country: None (occurrence: None)
  Receive Date: 20060825
  Receipt Date: 20060810
  Transmission Date: 20061208
  Serious: Yes (Other)
  Sender: FDA-Public Use
  Company Number: 2006BH012696

PATIENT
  Age: 4 Year
  Sex: Female

DRUGS (1)
  1. VINORELBINE TARTRATE [Suspect]
     Indication: BRAIN STEM GLIOMA
     Dosage: SEE IMAGE

REACTIONS (1)
  - VIITH NERVE PARALYSIS [None]
